FAERS Safety Report 8608822-8 (Version None)
Quarter: 2012Q3

REPORT INFORMATION
  Report Type: 
  Country: None (occurrence: None)
  Receive Date: 20120821
  Receipt Date: 20120112
  Transmission Date: 20120928
  Serious: Yes (Death, Hospitalization, Other)
  Sender: FDA-Public Use
  Company Number: US-ROCHE-1100008

PATIENT
  Age: 43 Year
  Sex: Male

DRUGS (3)
  1. MORPHINE [Concomitant]
     Route: 040
  2. NITRO DRIP [Concomitant]
  3. ACTIVASE [Suspect]
     Indication: ACUTE MYOCARDIAL INFARCTION

REACTIONS (11)
  - SUPRAVENTRICULAR TACHYCARDIA [None]
  - CARDIOGENIC SHOCK [None]
  - BRADYCARDIA [None]
  - NO THERAPEUTIC RESPONSE [None]
  - METABOLIC ACIDOSIS [None]
  - CARDIAC ARREST [None]
  - HYPOTENSION [None]
  - VENTRICULAR ARRHYTHMIA [None]
  - ARRHYTHMIA SUPRAVENTRICULAR [None]
  - PAIN [None]
  - LETHARGY [None]
